FAERS Safety Report 24200217 (Version 1)
Quarter: 2024Q3

REPORT INFORMATION
  Report Type: Spontaneous
  Country: CN (occurrence: CN)
  Receive Date: 20240812
  Receipt Date: 20240812
  Transmission Date: 20241017
  Serious: Yes (Life-Threatening)
  Sender: BAYER
  Company Number: CN-BAYER-2024A113923

PATIENT
  Age: 71 Year
  Sex: Female

DRUGS (2)
  1. ULTRAVIST [Suspect]
     Active Substance: IOPROMIDE
     Indication: Interventional procedure
     Dosage: UNK, ONCE
     Dates: start: 20240731, end: 20240731
  2. ULTRAVIST [Suspect]
     Active Substance: IOPROMIDE
     Indication: Carotid artery stenosis

REACTIONS (8)
  - Contrast media allergy [Recovered/Resolved]
  - Coma [Recovered/Resolved]
  - Skin discolouration [Recovered/Resolved]
  - Muscle twitching [Recovered/Resolved]
  - Hyperhidrosis [Recovered/Resolved]
  - Gait inability [Not Recovered/Not Resolved]
  - Hypoaesthesia [Not Recovered/Not Resolved]
  - Suspected product quality issue [None]

NARRATIVE: CASE EVENT DATE: 20240731
